FAERS Safety Report 9563435 (Version 1)
Quarter: 2013Q3

REPORT INFORMATION
  Report Type: Spontaneous
  Country: US (occurrence: None)
  Receive Date: 20130926
  Receipt Date: 20130926
  Transmission Date: 20140515
  Serious: Yes (Hospitalization)
  Sender: FDA-Public Use
  Company Number: None

PATIENT
  Age: 53 Year
  Sex: Male
  Weight: 88.4 kg

DRUGS (1)
  1. LINEZOLID [Suspect]
     Indication: ENTEROCOCCAL BACTERAEMIA
     Route: 042
     Dates: start: 20110610, end: 20110619

REACTIONS (1)
  - Platelet count decreased [None]
